FAERS Safety Report 17575215 (Version 1)
Quarter: 2020Q1

REPORT INFORMATION
  Report Type: Spontaneous
  Country: US (occurrence: US)
  Receive Date: 20200324
  Receipt Date: 20200324
  Transmission Date: 20200409
  Serious: Yes (Other)
  Sender: FDA-Public Use
  Company Number: US-AUROBINDO-AUR-APL-2020-015069

PATIENT
  Sex: Female

DRUGS (1)
  1. AMIODARONE HYDROCHLORIDE 200 MG TABLET [Suspect]
     Active Substance: AMIODARONE HYDROCHLORIDE
     Indication: ATRIAL FIBRILLATION
     Dosage: UNK
     Route: 065

REACTIONS (13)
  - Nervousness [Unknown]
  - Interstitial lung disease [Unknown]
  - Hypothyroidism [Unknown]
  - Depression [Unknown]
  - Fatigue [Unknown]
  - Thyroid disorder [Unknown]
  - Pneumonia [Unknown]
  - Cough [Unknown]
  - Blindness [Unknown]
  - Dyspnoea [Unknown]
  - Wheezing [Unknown]
  - Off label use [Unknown]
  - Asthenia [Unknown]

NARRATIVE: CASE EVENT DATE: 201602
